FAERS Safety Report 15557298 (Version 1)
Quarter: 2018Q4

REPORT INFORMATION
  Report Type: Spontaneous
  Country: AR (occurrence: AR)
  Receive Date: 20181026
  Receipt Date: 20181026
  Transmission Date: 20190205
  Serious: Yes (Other)
  Sender: FDA-Public Use
  Company Number: AR-009507513-1810ARG009440

PATIENT
  Age: 60 Year
  Sex: Male

DRUGS (1)
  1. KEYTRUDA [Suspect]
     Active Substance: PEMBROLIZUMAB
     Indication: LUNG ADENOCARCINOMA
     Dosage: 200 MILLIGRAM, Q3W (REPORTED AS ^EVERY 21 DAYS^)
     Dates: start: 201801

REACTIONS (4)
  - Autoimmune pericarditis [Unknown]
  - Neoplasm [Recovering/Resolving]
  - Pericardial effusion [Recovering/Resolving]
  - Lymphocytic infiltration [Recovering/Resolving]

NARRATIVE: CASE EVENT DATE: 2018
